FAERS Safety Report 13829910 (Version 1)
Quarter: 2017Q3

REPORT INFORMATION
  Report Type: Spontaneous
  Country: US (occurrence: US)
  Receive Date: 20170803
  Receipt Date: 20170803
  Transmission Date: 20171127
  Serious: Yes (Hospitalization, Other)
  Sender: FDA-Public Use
  Company Number: US-TEVA-771535USA

PATIENT
  Sex: Female

DRUGS (2)
  1. ACITRETIN. [Suspect]
     Active Substance: ACITRETIN
     Indication: KERATOSIS FOLLICULAR
     Dosage: 20 MILLIGRAM DAILY;
     Route: 048
     Dates: start: 2007
  2. ACITRETIN. [Suspect]
     Active Substance: ACITRETIN
     Indication: PSORIASIS

REACTIONS (4)
  - Infection [Unknown]
  - Generalised oedema [Unknown]
  - Drug dose omission [Unknown]
  - Skin infection [Recovering/Resolving]
